FAERS Safety Report 8378467-6 (Version None)
Quarter: 2012Q2

REPORT INFORMATION
  Report Type: 
  Country: None (occurrence: None)
  Receive Date: 20120522
  Receipt Date: 20110629
  Transmission Date: 20120825
  Serious: No
  Sender: FDA-Public Use
  Company Number: US-ASTRAZENECA-2011SE39107

PATIENT
  Age: 45 Year
  Sex: Female

DRUGS (3)
  1. ZOMETA [Suspect]
  2. PRILOSEC [Suspect]
     Route: 048
  3. PEPCID [Concomitant]

REACTIONS (10)
  - AFFECTIVE DISORDER [None]
  - MUSCLE SPASMS [None]
  - DISTURBANCE IN ATTENTION [None]
  - INSOMNIA [None]
  - DRUG HYPERSENSITIVITY [None]
  - ANXIETY [None]
  - SWOLLEN TONGUE [None]
  - HEADACHE [None]
  - CONFUSIONAL STATE [None]
  - AGITATION [None]
